FAERS Safety Report 6555759-4 (Version None)
Quarter: 2010Q1

REPORT INFORMATION
  Report Type: 
  Country: None (occurrence: None)
  Receive Date: 20100128
  Receipt Date: 20100118
  Transmission Date: 20100710
  Serious: Yes (Hospitalization)
  Sender: FDA-Public Use
  Company Number: NL-MEDIMMUNE-MEDI-0010234

PATIENT
  Sex: Female

DRUGS (1)
  1. SYNAGIS [Suspect]
     Route: 030
     Dates: start: 20091214, end: 20091214

REACTIONS (4)
  - COUGH [None]
  - MALAISE [None]
  - RESPIRATORY SYNCYTIAL VIRUS INFECTION [None]
  - WHEEZING [None]
